FAERS Safety Report 7329084-8 (Version None)
Quarter: 2011Q1

REPORT INFORMATION
  Report Type: 
  Country: None (occurrence: None)
  Receive Date: 20110303
  Receipt Date: 20110225
  Transmission Date: 20110831
  Serious: Yes (Other)
  Sender: FDA-Public Use
  Company Number: US-ABBOTT-09P-163-0560367-00

PATIENT
  Sex: Female
  Weight: 48.578 kg

DRUGS (6)
  1. HUMIRA [Suspect]
     Indication: CROHN'S DISEASE
     Dates: start: 20060101
  2. VICODIN [Concomitant]
     Indication: PAIN
  3. HUMIRA [Suspect]
     Indication: CROHN'S DISEASE
  4. ALBUTEROL [Concomitant]
     Indication: ASTHMA
  5. SINGULAIR [Concomitant]
     Indication: ASTHMA
     Dosage: 10 MG QD
  6. NORVASC [Concomitant]
     Indication: HYPERTENSION
     Dosage: 10 MG QD

REACTIONS (7)
  - URINARY TRACT INFECTION [None]
  - KIDNEY INFECTION [None]
  - HYSTERECTOMY [None]
  - TOOTH INFECTION [None]
  - INJECTION SITE HAEMATOMA [None]
  - MENORRHAGIA [None]
  - INFECTION [None]
